FAERS Safety Report 5818414-1 (Version None)
Quarter: 2008Q3

REPORT INFORMATION
  Report Type: 
  Country: None (occurrence: None)
  Receive Date: 20080718
  Receipt Date: 20080711
  Transmission Date: 20090109
  Serious: Yes (Other)
  Sender: FDA-Public Use
  Company Number: 2008SP013187

PATIENT
  Age: 54 Year
  Sex: Female

DRUGS (2)
  1. PEGINTRON (PEGINTERFERON ALFA-2B) (PEGINTERFERON ALFA-2B) [Suspect]
     Indication: HEPATITIS C
     Dosage: 80 MG; QW; SC
     Route: 058
     Dates: start: 20070110, end: 20070627
  2. REBETOL [Suspect]
     Indication: HEPATITIS C
     Dosage: 800 MG; QD; PO
     Route: 048
     Dates: start: 20070110, end: 20070627

REACTIONS (3)
  - ANOSMIA [None]
  - DYSGEUSIA [None]
  - POLYNEUROPATHY [None]
